FAERS Safety Report 5820940-6 (Version None)
Quarter: 2008Q3

REPORT INFORMATION
  Report Type: 
  Country: None (occurrence: None)
  Receive Date: 20080724
  Receipt Date: 20080715
  Transmission Date: 20090109
  Serious: Yes (Hospitalization)
  Sender: FDA-Public Use
  Company Number: DE-BAYER-200820270GPV

PATIENT
  Sex: Female

DRUGS (1)
  1. ANGELIQ [Suspect]
     Indication: DRUG USE FOR UNKNOWN INDICATION
     Route: 048

REACTIONS (3)
  - HEPATITIS C [None]
  - PROTHROMBIN TIME SHORTENED [None]
  - TRANSAMINASES INCREASED [None]
